FAERS Safety Report 5405922-0 (Version None)
Quarter: 2007Q3

REPORT INFORMATION
  Report Type: 
  Country: None (occurrence: None)
  Receive Date: 20070806
  Receipt Date: 20070730
  Transmission Date: 20080115
  Serious: Yes (Hospitalization)
  Sender: FDA-Public Use
  Company Number: HQWYE293730JUL07

PATIENT

DRUGS (1)
  1. CORDARONE [Suspect]
     Dosage: UNSPECIFIED
     Route: 048

REACTIONS (2)
  - ASTHENIA [None]
  - MUSCULAR WEAKNESS [None]
